FAERS Safety Report 11272208 (Version 1)
Quarter: 2015Q3

REPORT INFORMATION
  Report Type: Spontaneous
  Country: TR (occurrence: None)
  Receive Date: 20150713
  Receipt Date: 20150713
  Transmission Date: 20151125
  Serious: Yes (Death, Hospitalization)
  Sender: FDA-Public Use
  Company Number: TR-2015VAL000438

PATIENT

DRUGS (1)
  1. BROMOCRIPTINE MESYLATE (BROMOCRIPTINE MESYLATE) UNKNOWN [Suspect]
     Active Substance: BROMOCRIPTINE MESYLATE
     Indication: CRANIOCEREBRAL INJURY

REACTIONS (2)
  - Drug ineffective [None]
  - Off label use [None]
